FAERS Safety Report 14333411 (Version 2)
Quarter: 2018Q4

REPORT INFORMATION
  Report Type: Spontaneous
  Country: US (occurrence: US)
  Receive Date: 20171228
  Receipt Date: 20181227
  Transmission Date: 20190204
  Serious: Yes (Hospitalization, Other)
  Sender: FDA-Public Use
  Company Number: US-DSJP-DSU-2017-143822

PATIENT

DRUGS (1)
  1. BENICAR [Suspect]
     Active Substance: OLMESARTAN MEDOXOMIL
     Indication: HYPERTENSION
     Dosage: 40 MG, QD
     Route: 048
     Dates: start: 20131111, end: 20161130

REACTIONS (10)
  - Constipation [Unknown]
  - Rectal haemorrhage [Unknown]
  - Haematemesis [Not Recovered/Not Resolved]
  - Syncope [Unknown]
  - Sprue-like enteropathy [Not Recovered/Not Resolved]
  - Impaired gastric emptying [Unknown]
  - Hiatus hernia [Unknown]
  - Umbilical hernia [Unknown]
  - Pancreatitis [Unknown]
  - Diverticulum intestinal [Not Recovered/Not Resolved]

NARRATIVE: CASE EVENT DATE: 20140406
